FAERS Safety Report 13091323 (Version 1)
Quarter: 2017Q1

REPORT INFORMATION
  Report Type: Spontaneous
  Country: MX (occurrence: MX)
  Receive Date: 20170106
  Receipt Date: 20170106
  Transmission Date: 20170428
  Serious: Yes (Other)
  Sender: FDA-Public Use
  Company Number: MX-APOTEX-2017AP005108

PATIENT
  Age: 73 Year
  Sex: Female

DRUGS (2)
  1. EDARBI [Concomitant]
     Active Substance: AZILSARTAN KAMEDOXOMIL
     Indication: PRODUCT USED FOR UNKNOWN INDICATION
     Dosage: UNK
     Route: 065
  2. PAXIL [Suspect]
     Active Substance: PAROXETINE HYDROCHLORIDE
     Indication: ILL-DEFINED DISORDER
     Dosage: 20 MG, QD
     Route: 065

REACTIONS (3)
  - Fibroma [Unknown]
  - Malaise [Unknown]
  - Ill-defined disorder [Unknown]
